FAERS Safety Report 18654418 (Version 2)
Quarter: 2021Q1

REPORT INFORMATION
  Report Type: Spontaneous
  Country: US (occurrence: US)
  Receive Date: 20201223
  Receipt Date: 20210105
  Transmission Date: 20210419
  Serious: Yes (Death, Other)
  Sender: FDA-Public Use
  Company Number: US-009507513-2012USA009731

PATIENT

DRUGS (2)
  1. TEMAZEPAM. [Suspect]
     Active Substance: TEMAZEPAM
     Dosage: UNK
     Route: 064
  2. NUVARING [Suspect]
     Active Substance: ETHINYL ESTRADIOL\ETONOGESTREL
     Dosage: 1 RING, Q3W
     Route: 064
     Dates: start: 2010

REACTIONS (2)
  - Foetal exposure during pregnancy [Recovered/Resolved]
  - Beta haemolytic streptococcal infection [Fatal]

NARRATIVE: CASE EVENT DATE: 2020
